FAERS Safety Report 15029757 (Version 1)
Quarter: 2018Q2

REPORT INFORMATION
  Report Type: Spontaneous
  Country: US (occurrence: US)
  Receive Date: 20180529
  Receipt Date: 20180529
  Transmission Date: 20180711
  Serious: Yes (Other)
  Sender: FDA-Public Use
  Company Number: None

PATIENT
  Age: 83 Year
  Sex: Male

DRUGS (1)
  1. CAPECITABINE TAB 500 MG [Suspect]
     Active Substance: CAPECITABINE
     Dates: start: 20180512, end: 20180529

REACTIONS (4)
  - Decreased appetite [None]
  - Fatigue [None]
  - Photosensitivity reaction [None]
  - Neuropathy peripheral [None]

NARRATIVE: CASE EVENT DATE: 20180529
